FAERS Safety Report 4463189-4 (Version None)
Quarter: 2004Q3

REPORT INFORMATION
  Report Type: 
  Country: None (occurrence: None)
  Receive Date: 20040930
  Receipt Date: 20000904
  Transmission Date: 20050211
  Serious: Yes (Death)
  Sender: FDA-Public Use
  Company Number: AU-ROCHE-244359

PATIENT
  Age: 15 Year
  Sex: Female
  Weight: 48 kg

DRUGS (2)
  1. ROACCUTANE [Suspect]
     Route: 048
     Dates: start: 19990823, end: 20000228
  2. ROACCUTANE [Suspect]
     Route: 048
     Dates: start: 19980603, end: 19981115

REACTIONS (7)
  - COMPLETED SUICIDE [None]
  - DEPRESSION [None]
  - DYSTHYMIC DISORDER [None]
  - MAJOR DEPRESSION [None]
  - PERSONALITY DISORDER [None]
  - PSYCHOTIC DISORDER [None]
  - SCAR [None]
